FAERS Safety Report 11892356 (Version 1)
Quarter: 2016Q1

REPORT INFORMATION
  Report Type: Spontaneous
  Country: FR (occurrence: FR)
  Receive Date: 20160106
  Receipt Date: 20160106
  Transmission Date: 20160526
  Serious: Yes (Hospitalization, Other)
  Sender: FDA-Public Use
  Company Number: FR-BAXTER-2015BAX070468

PATIENT
  Age: 57 Year
  Sex: Female

DRUGS (21)
  1. ENDOXAN 1000 MG, POUDRE POUR SOLUTION INJECTABLE [Suspect]
     Active Substance: CYCLOPHOSPHAMIDE
     Dosage: ONCE IN A CYCLE
     Route: 042
     Dates: start: 20151118, end: 20151118
  2. IONS WITH VITAMINS [Concomitant]
     Indication: PRODUCT USED FOR UNKNOWN INDICATION
     Dosage: ADMINISTRATION ACCORDING TO IONOGRAM RESULTS
     Route: 065
  3. UMULINE RAPIDE [Concomitant]
     Active Substance: INSULIN ASPART
     Indication: PRODUCT USED FOR UNKNOWN INDICATION
     Route: 065
  4. ERYTHROPOIETIN [Concomitant]
     Active Substance: ERYTHROPOIETIN
     Indication: ANAEMIA
     Route: 065
  5. CLAIRYG [Concomitant]
     Active Substance: HUMAN IMMUNOGLOBULIN G
     Indication: VASCULITIS
     Route: 065
     Dates: start: 20151112
  6. METHYLPREDNISOLONE. [Concomitant]
     Active Substance: METHYLPREDNISOLONE
     Indication: PRODUCT USED FOR UNKNOWN INDICATION
     Route: 042
  7. OMEPRAZOLE. [Concomitant]
     Active Substance: OMEPRAZOLE
     Indication: PRODUCT USED FOR UNKNOWN INDICATION
     Route: 042
  8. IRON [Concomitant]
     Active Substance: IRON
     Indication: ANAEMIA
     Route: 065
  9. SOLU-MEDROL [Concomitant]
     Active Substance: METHYLPREDNISOLONE SODIUM SUCCINATE
     Indication: VASCULITIS
     Dosage: 3 BOLUS
     Route: 065
     Dates: start: 20151103, end: 20151105
  10. VITAMIN A [Concomitant]
     Active Substance: VITAMIN A
     Indication: PRODUCT USED FOR UNKNOWN INDICATION
     Dosage: 3 APPLICATIONS
  11. MIDAZOLAM [Concomitant]
     Active Substance: MIDAZOLAM\MIDAZOLAM HYDROCHLORIDE
     Indication: PRODUCT USED FOR UNKNOWN INDICATION
     Dosage: BY ELECTRICAL SYRINGE
     Route: 042
  12. IPRATROPIUM [Concomitant]
     Active Substance: IPRATROPIUM
     Indication: PRODUCT USED FOR UNKNOWN INDICATION
     Dosage: 1 PUFF
     Route: 065
  13. ENDOXAN 1000 MG, POUDRE POUR SOLUTION INJECTABLE [Suspect]
     Active Substance: CYCLOPHOSPHAMIDE
     Indication: VASCULITIS
     Dosage: FIRST COURSE
     Route: 042
     Dates: start: 20151103
  14. BACTRIM [Suspect]
     Active Substance: SULFAMETHOXAZOLE\TRIMETHOPRIM
     Indication: PROPHYLAXIS
     Route: 048
     Dates: start: 20151102, end: 20151124
  15. MESNA. [Suspect]
     Active Substance: MESNA
     Route: 065
     Dates: start: 20151118
  16. GLUCOSE 5% PERFUSION [Concomitant]
     Indication: PRODUCT USED FOR UNKNOWN INDICATION
     Route: 065
  17. SUFENTANIL [Concomitant]
     Active Substance: SUFENTANIL
     Indication: PRODUCT USED FOR UNKNOWN INDICATION
     Dosage: BY ELECTRICAL SYRINGE
     Route: 042
  18. MESNA. [Suspect]
     Active Substance: MESNA
     Indication: VASCULITIS
     Route: 065
     Dates: start: 20151103
  19. SOLUPRED [Concomitant]
     Active Substance: PREDNISOLONE
     Indication: VASCULITIS
     Route: 065
  20. SALBUTAMOL [Concomitant]
     Active Substance: ALBUTEROL
     Indication: PRODUCT USED FOR UNKNOWN INDICATION
     Dosage: 1 PUFF
     Route: 065
  21. ZELITREX [Concomitant]
     Active Substance: VALACYCLOVIR HYDROCHLORIDE
     Indication: PROPHYLAXIS
     Dosage: 1 TABLET
     Route: 065
     Dates: start: 20151102

REACTIONS (16)
  - Autoimmune disorder [Unknown]
  - Interstitial lung disease [Unknown]
  - Acute respiratory distress syndrome [Unknown]
  - Anxiety [Unknown]
  - Muscle haemorrhage [Unknown]
  - Hemiplegia [Unknown]
  - Haemorrhage [Unknown]
  - Pericardial effusion [Unknown]
  - Gastrointestinal angiodysplasia [Unknown]
  - Bone marrow failure [Recovered/Resolved]
  - Condition aggravated [Unknown]
  - Haemodynamic instability [Unknown]
  - Hypoxia [Unknown]
  - Acidosis [Unknown]
  - Condition aggravated [Unknown]
  - Anaemia [Unknown]

NARRATIVE: CASE EVENT DATE: 201511
